FAERS Safety Report 5471784-9 (Version None)
Quarter: 2007Q3

REPORT INFORMATION
  Report Type: 
  Country: None (occurrence: None)
  Receive Date: 20070928
  Receipt Date: 20070919
  Transmission Date: 20080115
  Serious: Yes (Other)
  Sender: FDA-Public Use
  Company Number: BR-PFIZER INC-2007051278

PATIENT
  Sex: Female
  Weight: 41 kg

DRUGS (12)
  1. SOLU-MEDROL [Suspect]
     Indication: INFLAMMATION
  2. DEFLAZACORT [Suspect]
     Indication: INFLAMMATION
     Route: 048
  3. VENLAFAXINE HCL [Concomitant]
     Route: 048
  4. BETAHISTINE [Concomitant]
     Route: 048
     Dates: start: 20070401
  5. ALENDRONATE SODIUM [Concomitant]
     Route: 048
  6. ALL OTHER THERAPEUTIC PRODUCTS [Concomitant]
     Route: 048
  7. LINSEED OIL [Concomitant]
     Route: 048
  8. PHARMATON [Concomitant]
     Route: 048
  9. ALL OTHER THERAPEUTIC PRODUCTS [Concomitant]
     Route: 048
  10. CALCIUM [Concomitant]
     Route: 048
  11. FOLIC ACID [Concomitant]
     Route: 048
     Dates: end: 20070601
  12. ATROVENT [Concomitant]
     Route: 055
     Dates: start: 20070612

REACTIONS (4)
  - HYPERHIDROSIS [None]
  - HYPOTENSION [None]
  - INFLAMMATION [None]
  - WEIGHT INCREASED [None]
